FAERS Safety Report 6927964-6 (Version None)
Quarter: 2010Q3

REPORT INFORMATION
  Report Type: 
  Country: None (occurrence: None)
  Receive Date: 20100817
  Receipt Date: 20100809
  Transmission Date: 20110219
  Serious: Yes (Death, Hospitalization, Other)
  Sender: FDA-Public Use
  Company Number: US-ELI_LILLY_AND_COMPANY-US200911007286

PATIENT
  Sex: Male
  Weight: 106.12 kg

DRUGS (14)
  1. BYETTA [Suspect]
     Indication: DIABETES MELLITUS
     Dosage: 5 UG, 2/D
     Route: 058
     Dates: start: 20060926, end: 20061101
  2. BYETTA [Suspect]
     Dosage: 10 UG, 2/D
     Route: 058
     Dates: start: 20061101, end: 20090416
  3. AMARYL [Concomitant]
     Dosage: 2 MG, EACH MORNING
     Dates: end: 20090212
  4. AMARYL [Concomitant]
     Dosage: 4 MG, EACH EVENING
     Route: 048
  5. METFORMIN [Concomitant]
     Indication: DIABETES MELLITUS
     Dosage: 2000 MG, EACH MORNING
  6. METFORMIN [Concomitant]
     Dosage: 1500 MG, EACH EVENING
     Route: 048
  7. COUMADIN [Concomitant]
     Indication: ATRIAL FIBRILLATION
     Dosage: 8 MG, EACH EVENING
     Route: 048
  8. SIMVASTATIN [Concomitant]
     Dosage: 20 MG, DAILY (1/D)
     Route: 048
  9. LISINOPRIL [Concomitant]
     Dosage: 40 MG, DAILY (1/D)
     Route: 048
  10. COREG [Concomitant]
     Dosage: 40 MG, DAILY (1/D)
     Route: 048
  11. LANOXIN [Concomitant]
     Dosage: 0.25 MG, DAILY (1/D)
  12. LANTUS [Concomitant]
     Dosage: UNK, EACH EVENING
  13. TRICOR [Concomitant]
     Dosage: 145 MG, DAILY (1/D)
     Route: 048
  14. ULTRACET [Concomitant]
     Dosage: UNK, AS NEEDED

REACTIONS (7)
  - ATRIAL FIBRILLATION [None]
  - CARDIAC ARREST [None]
  - COAGULOPATHY [None]
  - HYPOGLYCAEMIA [None]
  - HYPOGLYCAEMIC UNCONSCIOUSNESS [None]
  - OFF LABEL USE [None]
  - PANCREATITIS [None]
